FAERS Safety Report 19048021 (Version 1)
Quarter: 2021Q1

REPORT INFORMATION
  Report Type: Spontaneous
  Country: US (occurrence: US)
  Receive Date: 20210324
  Receipt Date: 20210324
  Transmission Date: 20210420
  Serious: No
  Sender: FDA-Public Use
  Company Number: US-GLAXOSMITHKLINE-USCH2021014507

PATIENT
  Age: 83 Year
  Sex: Female

DRUGS (2)
  1. AQUAPHOR [Suspect]
     Active Substance: PETROLATUM
     Indication: PRODUCT USED FOR UNKNOWN INDICATION
     Dosage: UNK
  2. ABREVA [Suspect]
     Active Substance: DOCOSANOL
     Indication: ORAL HERPES
     Dosage: UNK
     Dates: start: 20210307, end: 20210317

REACTIONS (2)
  - Wrong technique in product usage process [Unknown]
  - Incorrect product administration duration [Unknown]
